FAERS Safety Report 9070670 (Version 1)
Quarter: 2013Q1

REPORT INFORMATION
  Report Type: Spontaneous
  Country: ES (occurrence: ES)
  Receive Date: 20130206
  Receipt Date: 20130206
  Transmission Date: 20140127
  Serious: Yes (Life-Threatening, Hospitalization)
  Sender: FDA-Public Use
  Company Number: ES-B.I. PHARMACEUTICALS,INC./RIDGEFIELD-2013-ES-00040ES

PATIENT
  Age: 62 Year
  Sex: Male

DRUGS (5)
  1. PRADAXA [Suspect]
     Indication: ATRIAL FIBRILLATION
     Dosage: 300 MG
     Route: 048
  2. BISOPROLOL [Concomitant]
  3. ALOPURINOL [Concomitant]
  4. SIMVASTATINA [Concomitant]
  5. TELMISARTAN [Concomitant]

REACTIONS (3)
  - Ischaemic stroke [Not Recovered/Not Resolved]
  - Coma [Not Recovered/Not Resolved]
  - Cerebral haematoma [Not Recovered/Not Resolved]
